FAERS Safety Report 17046232 (Version 2)
Quarter: 2021Q2

REPORT INFORMATION
  Report Type: Report from Study
  Country: US (occurrence: US)
  Receive Date: 20191119
  Receipt Date: 20210510
  Transmission Date: 20210716
  Serious: No
  Sender: FDA-Public Use
  Company Number: US-AMGEN-USASP2019188823

PATIENT
  Age: 62 Year
  Sex: Female

DRUGS (1)
  1. NEUPOGEN [Suspect]
     Active Substance: FILGRASTIM
     Indication: PRODUCT USED FOR UNKNOWN INDICATION
     Dosage: UNK
     Route: 065

REACTIONS (6)
  - White blood cell count decreased [Unknown]
  - Illness [Unknown]
  - Cystitis [Unknown]
  - Counterfeit product administered [Unknown]
  - Infection [Unknown]
  - Rash [Unknown]
